FAERS Safety Report 4945872-7 (Version None)
Quarter: 2006Q1

REPORT INFORMATION
  Report Type: 
  Country: None (occurrence: None)
  Receive Date: 20060117
  Receipt Date: 20041215
  Transmission Date: 20060701
  Serious: Yes (Hospitalization)
  Sender: FDA-Public Use
  Company Number: A03200404256

PATIENT
  Age: 86 Year
  Sex: Male
  Weight: 76.2043 kg

DRUGS (5)
  1. PLAVIX [Suspect]
     Indication: CORONARY ARTERIAL STENT INSERTION
     Dosage: 75 MG QD - ORAL
     Route: 048
     Dates: start: 20041001
  2. LISINOPRIL [Concomitant]
  3. GLYBURIDE [Concomitant]
  4. ASPIRIN [Concomitant]
  5. . [Concomitant]

REACTIONS (2)
  - INCREASED TENDENCY TO BRUISE [None]
  - SYNCOPE [None]
